FAERS Safety Report 5191325-3 (Version None)
Quarter: 2006Q4

REPORT INFORMATION
  Report Type: 
  Country: None (occurrence: None)
  Receive Date: 20061219
  Receipt Date: 20061219
  Transmission Date: 20070319
  Serious: Yes (Life-Threatening, Hospitalization)
  Sender: FDA-Public Use
  Company Number: None

PATIENT
  Sex: Male

DRUGS (2)
  1. GEODON [Suspect]
     Indication: SCHIZOPHRENIA
     Dosage: 80 MG  BID  P.O.
     Route: 048
     Dates: start: 20020508, end: 20061113
  2. GEODON [Suspect]
     Indication: SCHIZOPHRENIA
     Dosage: 80 MG  BID  P.O.
     Route: 048
     Dates: start: 20061120

REACTIONS (3)
  - METABOLIC ACIDOSIS [None]
  - NEUROLEPTIC MALIGNANT SYNDROME [None]
  - WHITE BLOOD CELL COUNT INCREASED [None]
